FAERS Safety Report 21963336 (Version 1)
Quarter: 2023Q1

REPORT INFORMATION
  Report Type: Spontaneous
  Country: NL (occurrence: NL)
  Receive Date: 20230207
  Receipt Date: 20230207
  Transmission Date: 20230417
  Serious: Yes (Other)
  Sender: FDA-Public Use
  Company Number: None

PATIENT
  Sex: Female
  Weight: 62 kg

DRUGS (2)
  1. OXAZEPAM [Suspect]
     Active Substance: OXAZEPAM
     Indication: Anxiety
     Dosage: IF NECESSARY 0.5-1 TABLET, MAXIMUM 1 PER DAY, OXAZEPAM TABLET 10MG / BRAND NAME NOT SPECIFIED
     Route: 065
     Dates: start: 20230106
  2. PREGABALIN [Suspect]
     Active Substance: PREGABALIN
     Indication: Neuralgia
     Dosage: 75 MILLIGRAM DAILY; 1 CAPSULE 1 TIME PER DAY, PREGABALINE CAPSULE  75MG / BRAND NAME NOT SPECIFIED
     Route: 065
     Dates: start: 20190104

REACTIONS (1)
  - Hallucination, visual [Recovered/Resolved]
